FAERS Safety Report 6590994-0 (Version None)
Quarter: 2010Q1

REPORT INFORMATION
  Report Type: 
  Country: None (occurrence: None)
  Receive Date: 20100219
  Receipt Date: 20100210
  Transmission Date: 20100710
  Serious: Yes (Death, Other)
  Sender: FDA-Public Use
  Company Number: TR-ELI_LILLY_AND_COMPANY-TR201002002635

PATIENT
  Age: 57 Year
  Sex: Male

DRUGS (2)
  1. HUMULIN R [Suspect]
     Indication: DIABETES MELLITUS
     Dosage: 20 IU, EACH MORNING
     Route: 058
     Dates: start: 19920210, end: 20091218
  2. HUMULIN R [Suspect]
     Dosage: 20 IU, EACH EVENING
     Route: 058
     Dates: start: 19920210, end: 20091218

REACTIONS (1)
  - HEPATIC CIRRHOSIS [None]
